FAERS Safety Report 18649577 (Version 1)
Quarter: 2020Q4

REPORT INFORMATION
  Report Type: Report from Study
  Country: US (occurrence: US)
  Receive Date: 20201222
  Receipt Date: 20201222
  Transmission Date: 20210114
  Serious: Yes (Hospitalization)
  Sender: FDA-Public Use
  Company Number: US-EISAI MEDICAL RESEARCH-EC-2020-085373

PATIENT
  Age: 59 Year
  Sex: Female
  Weight: 90 kg

DRUGS (14)
  1. BACTRIM [Concomitant]
     Active Substance: SULFAMETHOXAZOLE\TRIMETHOPRIM
  2. LENVIMA [Suspect]
     Active Substance: LENVATINIB
     Indication: ENDOMETRIAL CANCER
     Route: 048
     Dates: start: 20200709, end: 20200911
  3. LENVIMA [Suspect]
     Active Substance: LENVATINIB
     Indication: UTERINE CANCER
     Route: 048
     Dates: start: 20200917, end: 20201210
  4. ARMOUR THYROID [Concomitant]
     Active Substance: THYROID, PORCINE
  5. PANTOPRAZOLE [Concomitant]
     Active Substance: PANTOPRAZOLE
  6. LORATADINE. [Concomitant]
     Active Substance: LORATADINE
  7. METHYLPREDNISOLONE. [Concomitant]
     Active Substance: METHYLPREDNISOLONE
  8. KEYTRUDA [Concomitant]
     Active Substance: PEMBROLIZUMAB
  9. PAROXETINE. [Concomitant]
     Active Substance: PAROXETINE
  10. OXYCODONE [Concomitant]
     Active Substance: OXYCODONE
  11. HYDROCORTISONE. [Concomitant]
     Active Substance: HYDROCORTISONE
  12. NITROFURANTOIN. [Concomitant]
     Active Substance: NITROFURANTOIN
  13. ONDASETRON [Concomitant]
     Active Substance: ONDANSETRON
  14. POTASSIUM [Concomitant]
     Active Substance: POTASSIUM

REACTIONS (4)
  - Listless [Unknown]
  - Decreased appetite [Unknown]
  - Confusional state [Unknown]
  - Stomatitis [Unknown]

NARRATIVE: CASE EVENT DATE: 202012
